FAERS Safety Report 11881174 (Version 1)
Quarter: 2015Q4

REPORT INFORMATION
  Report Type: Other
  Country: DE (occurrence: DE)
  Receive Date: 20151231
  Receipt Date: 20151231
  Transmission Date: 20160305
  Serious: Yes (Life-Threatening, Hospitalization, Other)
  Sender: FDA-Public Use
  Company Number: DE-MACLEODS PHARMACEUTICALS US LTD-MAC2015002291

PATIENT

DRUGS (7)
  1. VALSARTAN AND HYDROCHLOROTHIAZIDE [Suspect]
     Active Substance: HYDROCHLOROTHIAZIDE\VALSARTAN
     Indication: HYPERTENSION
     Dosage: 1 DF, QD (TAKING FOR YEARS)
     Route: 048
  2. LERCANIDIPIN [Suspect]
     Active Substance: LERCANIDIPINE
     Indication: ATRIAL FIBRILLATION
     Dosage: 20 MG, QD (TAKING FOR YEARS)
     Route: 048
  3. TOREM [Suspect]
     Active Substance: TORSEMIDE
     Indication: DIABETIC NEPHROPATHY
     Dosage: 20 MG, QD (TAKING FOR YEARS)
     Route: 048
  4. FALITHROM [Suspect]
     Active Substance: PHENPROCOUMON
     Indication: ATRIAL FIBRILLATION
     Dosage: 1-1/2 /DAY (TAKING FOR YEARS)
     Route: 048
  5. DEKRISTOL 20000 [Suspect]
     Active Substance: CHOLECALCIFEROL
     Indication: DIABETIC NEPHROPATHY
     Dosage: 20 IU, EVERY WEEKS
     Route: 065
  6. DIOVAN [Suspect]
     Active Substance: VALSARTAN
     Indication: CARDIAC FAILURE
     Dosage: 1 DF, QD (TAKING FOR YEARS)
     Route: 048
  7. SIMVASTATIN. [Suspect]
     Active Substance: SIMVASTATIN
     Indication: HYPERLIPIDAEMIA
     Dosage: 40 MG, QD (TAKING FOR YEARS)
     Route: 048

REACTIONS (22)
  - Peripheral swelling [Not Recovered/Not Resolved]
  - Blister [Not Recovered/Not Resolved]
  - Cardiac failure [Not Recovered/Not Resolved]
  - Erysipelas [Not Recovered/Not Resolved]
  - Nephritic syndrome [Not Recovered/Not Resolved]
  - Acute kidney injury [None]
  - Staphylococcus test positive [None]
  - Corynebacterium test positive [None]
  - Septic shock [Not Recovered/Not Resolved]
  - Acute kidney injury [Not Recovered/Not Resolved]
  - Pain [Not Recovered/Not Resolved]
  - Generalised erythema [Not Recovered/Not Resolved]
  - Anuria [Not Recovered/Not Resolved]
  - Toxic epidermal necrolysis [Not Recovered/Not Resolved]
  - Continuous haemodiafiltration [None]
  - Respiratory failure [Not Recovered/Not Resolved]
  - Multi-organ failure [Not Recovered/Not Resolved]
  - Induration [Not Recovered/Not Resolved]
  - General physical health deterioration [Not Recovered/Not Resolved]
  - Dyspnoea [Not Recovered/Not Resolved]
  - Hepatic failure [Not Recovered/Not Resolved]
  - Sepsis [Not Recovered/Not Resolved]

NARRATIVE: CASE EVENT DATE: 20151113
